FAERS Safety Report 8315729-2 (Version None)
Quarter: 2012Q2

REPORT INFORMATION
  Report Type: 
  Country: None (occurrence: None)
  Receive Date: 20120426
  Receipt Date: 20120416
  Transmission Date: 20120825
  Serious: Yes (Congenital Anomaly)
  Sender: FDA-Public Use
  Company Number: US-MERCK-1204USA03303B1

PATIENT
  Age: 0 Day

DRUGS (5)
  1. TRUVADA [Suspect]
     Route: 064
  2. ISENTRESS [Suspect]
     Route: 064
  3. COMBIVIR [Suspect]
     Route: 064
  4. NORVIR [Suspect]
     Route: 064
  5. REYATAZ [Suspect]
     Route: 064

REACTIONS (5)
  - SPINA BIFIDA [None]
  - VERTICAL TALUS [None]
  - FOETAL CHROMOSOME ABNORMALITY [None]
  - ARNOLD-CHIARI MALFORMATION [None]
  - FOETAL EXPOSURE DURING PREGNANCY [None]
